FAERS Safety Report 24861779 (Version 1)
Quarter: 2025Q1

REPORT INFORMATION
  Report Type: Spontaneous
  Country: JP (occurrence: JP)
  Receive Date: 20250120
  Receipt Date: 20250120
  Transmission Date: 20250408
  Serious: Yes (Death)
  Sender: TAKEDA
  Company Number: JP-TAKEDA-2025TJP000121

PATIENT
  Age: 69 Year
  Sex: Male

DRUGS (1)
  1. FRUZAQLA [Suspect]
     Active Substance: FRUQUINTINIB
     Indication: Colon cancer
     Dosage: 5 MILLIGRAM, QD
     Dates: start: 20241204, end: 20241224

REACTIONS (2)
  - Drug ineffective [Fatal]
  - No adverse event [Unknown]

NARRATIVE: CASE EVENT DATE: 20250102
